FAERS Safety Report 6285662-9 (Version None)
Quarter: 2009Q3

REPORT INFORMATION
  Report Type: 
  Country: None (occurrence: None)
  Receive Date: 20090724
  Receipt Date: 20090715
  Transmission Date: 20100115
  Serious: Yes (Death, Hospitalization, Other)
  Sender: FDA-Public Use
  Company Number: A-US2009-26397

PATIENT
  Age: 52 Year
  Sex: Female

DRUGS (9)
  1. TRACLEER [Suspect]
     Indication: PULMONARY ARTERIAL HYPERTENSION
     Dosage: SEE IMAGE
     Route: 048
     Dates: start: 20050701, end: 20070901
  2. TRACLEER [Suspect]
     Indication: PULMONARY ARTERIAL HYPERTENSION
     Dosage: SEE IMAGE
     Route: 048
     Dates: start: 20081027, end: 20081101
  3. TRACLEER [Suspect]
     Indication: PULMONARY ARTERIAL HYPERTENSION
     Dosage: SEE IMAGE
     Route: 048
     Dates: start: 20081101, end: 20090612
  4. TADALAFIL [Concomitant]
  5. ARIMIDEX [Concomitant]
  6. LASIX [Concomitant]
  7. FONDAPARINUX [Concomitant]
  8. LEXAPRO [Concomitant]
  9. WARFARIN SODIUM [Concomitant]

REACTIONS (7)
  - BREAST CANCER RECURRENT [None]
  - CARDIAC ARREST [None]
  - DISEASE PROGRESSION [None]
  - EPISTAXIS [None]
  - PULMONARY ARTERIAL HYPERTENSION [None]
  - RESPIRATORY ARREST [None]
  - RIGHT VENTRICULAR FAILURE [None]
